FAERS Safety Report 23955034 (Version 2)
Quarter: 2025Q4

REPORT INFORMATION
  Report Type: Spontaneous
  Country: JP (occurrence: JP)
  Receive Date: 20240610
  Receipt Date: 20251216
  Transmission Date: 20260118
  Serious: Yes (Other)
  Sender: BRISTOL-MYERS SQUIBB COMPANY
  Company Number: JP-BRISTOL-MYERS SQUIBB COMPANY-2024-092215

PATIENT
  Age: 83 Year
  Sex: Female

DRUGS (3)
  1. ORENCIA [Suspect]
     Active Substance: ABATACEPT
     Indication: Rheumatic disorder
     Route: 041
  2. ORENCIA [Suspect]
     Active Substance: ABATACEPT
     Route: 041
  3. ORENCIA [Suspect]
     Active Substance: ABATACEPT
     Route: 041

REACTIONS (9)
  - Inappropriate schedule of product administration [Unknown]
  - Palpitations [Recovered/Resolved]
  - Cataract [Unknown]
  - Coronavirus infection [Unknown]
  - Dry skin [Recovered/Resolved]
  - Product dose omission issue [Unknown]
  - Administration site discolouration [Unknown]
  - Musculoskeletal stiffness [Unknown]
  - Muscle spasms [Unknown]

NARRATIVE: CASE EVENT DATE: 20240101
